FAERS Safety Report 7159155-0 (Version None)
Quarter: 2010Q4

REPORT INFORMATION
  Report Type: 
  Country: None (occurrence: None)
  Receive Date: 20101214
  Receipt Date: 20101202
  Transmission Date: 20110411
  Serious: Yes (Hospitalization)
  Sender: FDA-Public Use
  Company Number: US-ELI_LILLY_AND_COMPANY-US201010005240

PATIENT
  Sex: Female

DRUGS (11)
  1. FORTEO [Suspect]
     Indication: OSTEOPOROSIS
     Dosage: 20 UG, DAILY (1/D)
     Route: 065
  2. FORTEO [Suspect]
     Dosage: 20 UG, DAILY (1/D)
     Dates: start: 20101105
  3. PREVACID [Concomitant]
  4. VITAMIN D [Concomitant]
  5. CALCIUM [Concomitant]
  6. VICODIN [Concomitant]
  7. LANTUS [Concomitant]
  8. NOVOLOG [Concomitant]
  9. POTASSIUM CHLORIDE [Concomitant]
  10. ASPIRIN [Concomitant]
     Dosage: 81 MG, DAILY (1/D)
  11. COLACE [Concomitant]
     Indication: ABNORMAL FAECES

REACTIONS (13)
  - BACK PAIN [None]
  - CATARACT [None]
  - CONFUSIONAL STATE [None]
  - DECREASED ACTIVITY [None]
  - ERYTHEMA [None]
  - FEELING HOT [None]
  - FUNGAL INFECTION [None]
  - IMPAIRED HEALING [None]
  - LETHARGY [None]
  - MEMORY IMPAIRMENT [None]
  - PAIN [None]
  - SKIN DISORDER [None]
  - VISION BLURRED [None]
